FAERS Safety Report 5110698-0 (Version None)
Quarter: 2006Q3

REPORT INFORMATION
  Report Type: 
  Country: None (occurrence: None)
  Receive Date: 20060919
  Receipt Date: 20060609
  Transmission Date: 20061208
  Serious: Yes (Hospitalization)
  Sender: FDA-Public Use
  Company Number: USPFP-L-20060004

PATIENT
  Age: 60 Year
  Sex: Female

DRUGS (10)
  1. NAVELBINE [Suspect]
     Indication: DRUG USE FOR UNKNOWN INDICATION
     Dates: start: 20030701, end: 20040401
  2. GEMCITABINE [Suspect]
     Indication: DRUG USE FOR UNKNOWN INDICATION
     Dosage: 1424 MG DAILY IV
     Route: 042
  3. SOLU-MEDROL [Concomitant]
  4. OXYGEN [Concomitant]
  5. LEVAQUIN [Concomitant]
  6. LASIX [Concomitant]
  7. ALBUTEROL [Concomitant]
  8. IPRATRAPUM [Concomitant]
  9. VANCOMYCIN [Concomitant]
  10. CEFTAZADINE [Concomitant]

REACTIONS (10)
  - ANAEMIA [None]
  - BLOOD PRESSURE INCREASED [None]
  - BRONCHITIS ACUTE [None]
  - HEART RATE INCREASED [None]
  - JUGULAR VEIN DISTENSION [None]
  - PLEURAL EFFUSION [None]
  - PNEUMONIA [None]
  - PULMONARY TOXICITY [None]
  - RESPIRATORY FAILURE [None]
  - THERAPY NON-RESPONDER [None]
